FAERS Safety Report 5748988-0 (Version None)
Quarter: 2008Q2

REPORT INFORMATION
  Report Type: 
  Country: None (occurrence: None)
  Receive Date: 20080527
  Receipt Date: 20080520
  Transmission Date: 20081010
  Serious: Yes (Other)
  Sender: FDA-Public Use
  Company Number: JP-ELI_LILLY_AND_COMPANY-JP200805004416

PATIENT
  Age: 16 Year
  Sex: Female

DRUGS (4)
  1. ZYPREXA [Suspect]
     Indication: SCHIZOPHRENIA
     Dosage: 5 MG, DAILY (1/D)
     Route: 048
  2. TOLEDOMIN [Concomitant]
     Dosage: 75 MG, DAILY (1/D)
     Route: 048
  3. MEILAX [Concomitant]
     Route: 048
  4. DEPAS [Concomitant]
     Indication: INSOMNIA
     Dosage: 1 MG, DAILY (1/D)
     Route: 048

REACTIONS (2)
  - EPISTAXIS [None]
  - NASOPHARYNGITIS [None]
